FAERS Safety Report 15625886 (Version 1)
Quarter: 2018Q4

REPORT INFORMATION
  Report Type: Spontaneous
  Country: US (occurrence: US)
  Receive Date: 20181116
  Receipt Date: 20181116
  Transmission Date: 20190205
  Serious: Yes (Other)
  Sender: FDA-Public Use
  Company Number: None

PATIENT
  Age: 55 Year
  Sex: Female
  Weight: 89.4 kg

DRUGS (3)
  1. HERCEPTIN [Suspect]
     Active Substance: TRASTUZUMAB
     Indication: HER-2 POSITIVE BREAST CANCER
     Dosage: ?          OTHER FREQUENCY:EVERY 3 WEEKS;?
     Route: 041
     Dates: start: 20181114
  2. PERJETA [Concomitant]
     Active Substance: PERTUZUMAB
     Dates: start: 20181114
  3. DOCETAXEL. [Concomitant]
     Active Substance: DOCETAXEL
     Dates: start: 20181114

REACTIONS (1)
  - Chills [None]

NARRATIVE: CASE EVENT DATE: 20181114
